FAERS Safety Report 7198230-1 (Version None)
Quarter: 2010Q4

REPORT INFORMATION
  Report Type: 
  Country: None (occurrence: None)
  Receive Date: 20101223
  Receipt Date: 20101223
  Transmission Date: 20110411
  Serious: Yes (Other)
  Sender: FDA-Public Use
  Company Number: None

PATIENT
  Age: 77 Year
  Sex: Female
  Weight: 66.9963 kg

DRUGS (1)
  1. CEFTRIAXONE GM 1 NOVAPLUS BY SANDOZ [Suspect]
     Indication: PNEUMONIA
     Dosage: GM I DAILY IV DRIP
     Route: 041
     Dates: start: 20101210, end: 20101212

REACTIONS (4)
  - CHEILITIS [None]
  - PHARYNGEAL DISORDER [None]
  - SWELLING FACE [None]
  - URTICARIA [None]
